FAERS Safety Report 9422955 (Version 1)
Quarter: 2013Q3

REPORT INFORMATION
  Report Type: Spontaneous
  Country: AU (occurrence: None)
  Receive Date: 20130711
  Receipt Date: 20130711
  Transmission Date: 20140515
  Serious: Yes (Other)
  Sender: FDA-Public Use
  Company Number: GAM-193-13-AU

PATIENT
  Age: 57 Year
  Sex: Male

DRUGS (3)
  1. OCTAGAM [Suspect]
     Indication: CHRONIC INFLAMMATORY DEMYELINATING POLYRADICULONEUROPATHY
     Dosage: (1X 2/WEEKS)
     Route: 042
  2. METHOTREXATE [Suspect]
     Indication: PRODUCT USED FOR UNKNOWN INDICATION
     Dosage: 1X 1/CYCLICAL
  3. PREDNISONE [Concomitant]

REACTIONS (1)
  - Deep vein thrombosis [None]
